FAERS Safety Report 6840667-1 (Version None)
Quarter: 2010Q3

REPORT INFORMATION
  Report Type: 
  Country: None (occurrence: None)
  Receive Date: 20100714
  Receipt Date: 20100708
  Transmission Date: 20110219
  Serious: Yes (Hospitalization)
  Sender: FDA-Public Use
  Company Number: EMADSS2001000238

PATIENT
  Sex: Female

DRUGS (1)
  1. LOPERAMIDE OXIDE [Suspect]
     Indication: GASTROINTESTINAL INFECTION
     Route: 048

REACTIONS (1)
  - GASTROINTESTINAL MALFORMATION [None]
